FAERS Safety Report 6196637-2 (Version None)
Quarter: 2009Q2

REPORT INFORMATION
  Report Type: 
  Country: None (occurrence: None)
  Receive Date: 20090520
  Receipt Date: 20090513
  Transmission Date: 20091009
  Serious: Yes (Hospitalization)
  Sender: FDA-Public Use
  Company Number: A0772779A

PATIENT
  Age: 8 Year
  Sex: Female

DRUGS (1)
  1. ALTABAX [Suspect]
     Indication: CELLULITIS
     Route: 061

REACTIONS (3)
  - CELLULITIS [None]
  - OVERDOSE [None]
  - RASH [None]
